FAERS Safety Report 7348328-X (Version None)
Quarter: 2011Q1

REPORT INFORMATION
  Report Type: 
  Country: None (occurrence: None)
  Receive Date: 20110311
  Receipt Date: 20110211
  Transmission Date: 20110831
  Serious: No
  Sender: FDA-Public Use
  Company Number: US-B.I. PHARMACEUTICALS,INC./RIDGEFIELD-2010-BP-14910BP

PATIENT
  Sex: Female

DRUGS (10)
  1. SYMBICORT [Concomitant]
     Dosage: 1 PUF
     Route: 055
  2. SIMVASTATIN [Concomitant]
     Dosage: 4 MG
     Route: 048
  3. METOPROLOL [Concomitant]
     Route: 048
  4. ASPIRIN [Concomitant]
     Dosage: 81 MG
     Route: 048
  5. PRADAXA [Suspect]
     Indication: ATRIAL FIBRILLATION
     Dosage: 300 MG
     Route: 048
     Dates: start: 20101210
  6. OXYBUTYNIN [Concomitant]
     Dosage: 5 MG
     Route: 048
  7. MULTAQ [Concomitant]
     Dosage: 4 MG
     Route: 048
  8. PRADAXA [Suspect]
     Indication: DRUG THERAPY CHANGED
  9. POT CHLORIDE [Concomitant]
     Dosage: 20 MG
     Route: 048
  10. LISINOPRIL [Concomitant]
     Dosage: 10 MG
     Route: 048

REACTIONS (5)
  - ODYNOPHAGIA [None]
  - EPISTAXIS [None]
  - THROAT IRRITATION [None]
  - DYSPEPSIA [None]
  - OROPHARYNGEAL PAIN [None]
